FAERS Safety Report 14775264 (Version 1)
Quarter: 2018Q2

REPORT INFORMATION
  Report Type: Spontaneous
  Country: GB (occurrence: GB)
  Receive Date: 20180418
  Receipt Date: 20180418
  Transmission Date: 20180711
  Serious: Yes (Hospitalization, Other)
  Sender: FDA-Public Use
  Company Number: GB-TEVA-2018-GB-883234

PATIENT
  Age: 72 Year
  Sex: Male
  Weight: 70 kg

DRUGS (12)
  1. AMOXICILLIN. [Concomitant]
     Active Substance: AMOXICILLIN
     Dosage: 3 DOSAGE FORMS DAILY;
     Dates: start: 20180102, end: 20180109
  2. OTOMIZE [Concomitant]
     Active Substance: DEXAMETHASONE\NEOMYCIN SULFATE
     Dosage: USE AS DIRECTED
     Dates: start: 20180102, end: 20180112
  3. CALAMINE [Concomitant]
     Active Substance: CALAMINE\FERRIC OXIDE RED\ZINC OXIDE
     Dosage: APPLY
     Dates: start: 20180130, end: 20180204
  4. LANSOPRAZOLE. [Concomitant]
     Active Substance: LANSOPRAZOLE
     Dosage: 1 DOSAGE FORMS DAILY;
     Dates: start: 20170802
  5. CLARITHROMYCIN. [Concomitant]
     Active Substance: CLARITHROMYCIN
     Dates: start: 20180109, end: 20180112
  6. CLOBETASONE BUTYRATE [Concomitant]
     Active Substance: CLOBETASONE BUTYRATE
     Dosage: APPLY 1-2 TIMES/DAY FOR MAX 7 DAYS
     Dates: start: 20180130
  7. ATORVASTATIN [Suspect]
     Active Substance: ATORVASTATIN
     Dates: start: 20170802
  8. ACETYLSALICYLIC ACID [Concomitant]
     Active Substance: ASPIRIN
     Dosage: 1 DOSAGE FORMS DAILY; UNTIL FURTHER NOTICE
     Dates: start: 20170802
  9. GLYCERYL TRINITRATE [Concomitant]
     Active Substance: NITROGLYCERIN
     Indication: CHEST PAIN
     Dosage: PUFF
     Dates: start: 20170802
  10. TICAGRELOR. [Concomitant]
     Active Substance: TICAGRELOR
     Dosage: 2 CURIES DAILY;
     Dates: start: 20170802
  11. RAMIPRIL. [Concomitant]
     Active Substance: RAMIPRIL
     Dosage: 1 DOSAGE FORMS DAILY; OMIT TEMPORARILY FOR A FEW DAYS...
     Dates: start: 20180109, end: 20180206
  12. CO-DYDRAMOL [Concomitant]
     Active Substance: ACETAMINOPHEN\DIHYDROCODEINE
     Dosage: TAKE 1 OR 2 UP TO 4 TIMES/DAY
     Dates: start: 20180102, end: 20180114

REACTIONS (2)
  - Drug-induced liver injury [Recovering/Resolving]
  - Jaundice [Unknown]

NARRATIVE: CASE EVENT DATE: 20180118
